FAERS Safety Report 8613631-X (Version None)
Quarter: 2012Q3

REPORT INFORMATION
  Report Type: 
  Country: None (occurrence: None)
  Receive Date: 20120823
  Receipt Date: 20120721
  Transmission Date: 20120928
  Serious: Yes (Other)
  Sender: FDA-Public Use
  Company Number: GB-009507513-1207GBR001662

PATIENT

DRUGS (2)
  1. NEXPLANON [Suspect]
     Indication: CONTRACEPTION
     Dosage: UNK
     Dates: end: 20120411
  2. NEXPLANON [Suspect]
     Dosage: UNK
     Route: 059
     Dates: start: 20120411, end: 20120611

REACTIONS (4)
  - MENORRHAGIA [None]
  - CONTUSION [None]
  - EXCESSIVE GRANULATION TISSUE [None]
  - ERYTHEMA [None]
